FAERS Safety Report 12009899 (Version 1)
Quarter: 2016Q1

REPORT INFORMATION
  Report Type: Spontaneous
  Country: CN (occurrence: CN)
  Receive Date: 20160205
  Receipt Date: 20160205
  Transmission Date: 20160526
  Serious: Yes (Other)
  Sender: FDA-Public Use
  Company Number: PHHY2016CN014708

PATIENT
  Age: 29 Year
  Sex: Male

DRUGS (1)
  1. TELBIVUDINE [Suspect]
     Active Substance: TELBIVUDINE
     Indication: CHRONIC HEPATITIS B
     Dosage: 600 MG, QD
     Route: 065

REACTIONS (4)
  - Pain in extremity [Recovering/Resolving]
  - Rhabdomyolysis [Recovering/Resolving]
  - Oedema peripheral [Recovering/Resolving]
  - Urine output decreased [Recovering/Resolving]
